FAERS Safety Report 8780243 (Version 1)
Quarter: 2012Q4

REPORT INFORMATION
  Report Type: 
  Country: US (occurrence: None)
  Receive Date: 20120904
  Receipt Date: 20120904
  Transmission Date: 20130627
  Serious: No
  Sender: FDA-Public Use
  Company Number: None

PATIENT
  Sex: Male
  Weight: 83 kg

DRUGS (4)
  1. OXALIPLATIN [Suspect]
  2. 5-FLUOROURACIL [Suspect]
  3. BEVACIZUMAB [Suspect]
  4. LEUCOVORIN CALCIUM [Suspect]

REACTIONS (7)
  - Peripheral sensory neuropathy [None]
  - Hypoaesthesia [None]
  - Hypoaesthesia [None]
  - Hypoaesthesia [None]
  - Accident at work [None]
  - Limb injury [None]
  - Temperature intolerance [None]
